FAERS Safety Report 6355632-0 (Version None)
Quarter: 2009Q3

REPORT INFORMATION
  Report Type: 
  Country: None (occurrence: None)
  Receive Date: 20090914
  Receipt Date: 20090904
  Transmission Date: 20100115
  Serious: Yes (Other)
  Sender: FDA-Public Use
  Company Number: DE-MERCK-0909DEU00008

PATIENT
  Age: 77 Year
  Sex: Female

DRUGS (3)
  1. VYTORIN [Suspect]
     Indication: HYPERCHOLESTEROLAEMIA
     Route: 048
     Dates: start: 20090827
  2. NITROFURANTOIN [Concomitant]
     Indication: CYSTITIS NONINFECTIVE
     Route: 065
     Dates: start: 20090831
  3. NITROFURANTOIN [Concomitant]
     Indication: BLADDER NEOPLASM
     Route: 065
     Dates: start: 20090831

REACTIONS (3)
  - CIRCULATORY COLLAPSE [None]
  - HYPERTENSIVE CRISIS [None]
  - MUSCLE SPASMS [None]
